FAERS Safety Report 19682556 (Version 3)
Quarter: 2022Q1

REPORT INFORMATION
  Report Type: Report from Study
  Country: IL (occurrence: IL)
  Receive Date: 20210811
  Receipt Date: 20220324
  Transmission Date: 20220424
  Serious: Yes (Hospitalization, Other)
  Sender: FDA-Public Use
  Company Number: IL-SA-2019SA000573

PATIENT
  Age: 32 Year
  Sex: Female

DRUGS (1)
  1. ALEMTUZUMAB [Suspect]
     Active Substance: ALEMTUZUMAB
     Indication: Multiple sclerosis
     Dosage: 12 MG, QD
     Route: 042
     Dates: start: 20181216, end: 20181219

REACTIONS (27)
  - Rectal haemorrhage [Recovered/Resolved]
  - Chest discomfort [Recovered/Resolved]
  - Pain in extremity [Not Recovered/Not Resolved]
  - Asthenia [Recovered/Resolved]
  - Renal cyst [Unknown]
  - Blood iron decreased [Recovered/Resolved]
  - Herpes virus infection [Recovering/Resolving]
  - Gingival pain [Recovered/Resolved]
  - Toothache [Recovered/Resolved]
  - Facial pain [Recovered/Resolved]
  - Hypoaesthesia oral [Recovered/Resolved]
  - Magnetic resonance imaging abnormal [Unknown]
  - Haemoglobin decreased [Recovered/Resolved]
  - Haemoptysis [Unknown]
  - Hypotension [Recovered/Resolved]
  - Tremor [Recovered/Resolved]
  - Weight decreased [Unknown]
  - Uterine cyst [Unknown]
  - Abdominal hernia [Unknown]
  - Asthenia [Recovered/Resolved]
  - Pain [Unknown]
  - Fatigue [Unknown]
  - Chills [Recovered/Resolved]
  - Pyrexia [Recovered/Resolved]
  - Dizziness [Not Recovered/Not Resolved]
  - Initial insomnia [Unknown]
  - COVID-19 [Recovered/Resolved]

NARRATIVE: CASE EVENT DATE: 20181201
